FAERS Safety Report 17488606 (Version 1)
Quarter: 2020Q1

REPORT INFORMATION
  Report Type: Spontaneous
  Country: US (occurrence: US)
  Receive Date: 20200220
  Receipt Date: 20200220
  Transmission Date: 20200409
  Serious: No
  Sender: FDA-Public Use
  Company Number: None

PATIENT
  Age: 66 Year
  Sex: Female
  Weight: 117.93 kg

DRUGS (1)
  1. CIMZIA [Suspect]
     Active Substance: CERTOLIZUMAB PEGOL
     Indication: RHEUMATOID ARTHRITIS
     Dosage: ?          OTHER STRENGTH:400MG/2ML;OTHER FREQUENCY:EVERY 4 WEEKS;?
     Route: 058
     Dates: start: 201911

REACTIONS (3)
  - Pneumonia [None]
  - Influenza [None]
  - Myocardial infarction [None]
